FAERS Safety Report 14166498 (Version 4)
Quarter: 2017Q4

REPORT INFORMATION
  Report Type: Spontaneous
  Country: JP (occurrence: JP)
  Receive Date: 20171107
  Receipt Date: 20171221
  Transmission Date: 20180321
  Serious: Yes (Life-Threatening, Other)
  Sender: FDA-Public Use
  Company Number: JP-BAYER-2017-185243

PATIENT
  Age: 5 Year
  Sex: Female
  Weight: 12.2 kg

DRUGS (8)
  1. WARFARIN [Suspect]
     Active Substance: WARFARIN
     Indication: THROMBOSIS PROPHYLAXIS
     Dosage: DAILY DOSE .3 MG
     Dates: start: 20130829, end: 20170925
  2. ARTIST [Concomitant]
     Active Substance: CARVEDILOL
     Indication: CARDIAC FAILURE
     Dosage: DAILY DOSE .7 MG
     Dates: start: 20130829, end: 20170925
  3. IOPAMIRON [Suspect]
     Active Substance: IOPAMIDOL
     Indication: VENTRICULAR SEPTAL DEFECT
  4. IOPAMIRON [Suspect]
     Active Substance: IOPAMIDOL
     Indication: AORTOGRAM
     Dosage: 6 ML, ONCE
     Route: 040
     Dates: start: 20170925, end: 20170925
  5. IOPAMIRON [Suspect]
     Active Substance: IOPAMIDOL
     Indication: AORTIC VALVE ATRESIA
  6. ENALART [Concomitant]
     Active Substance: ENALAPRIL MALEATE
     Indication: CARDIAC FAILURE
     Dosage: DAILY DOSE 1.4 MG
     Dates: start: 20130829, end: 20170925
  7. HEPARIN [Suspect]
     Active Substance: HEPARIN SODIUM
  8. ACETYLSALICYLIC ACID [Suspect]
     Active Substance: ASPIRIN
     Indication: THROMBOSIS PROPHYLAXIS
     Dosage: DAILY DOSE 30 MG
     Dates: start: 20130829, end: 20170925

REACTIONS (3)
  - Delayed recovery from anaesthesia [None]
  - Extravasation [None]
  - Subarachnoid haemorrhage [Not Recovered/Not Resolved]

NARRATIVE: CASE EVENT DATE: 20170925
